FAERS Safety Report 4620455-7 (Version None)
Quarter: 2005Q1

REPORT INFORMATION
  Report Type: 
  Country: None (occurrence: None)
  Receive Date: 20050324
  Receipt Date: 20050311
  Transmission Date: 20050727
  Serious: Yes (Life-Threatening, Hospitalization)
  Sender: FDA-Public Use
  Company Number: HQWYE067411MAR05

PATIENT
  Age: 81 Year
  Sex: Female

DRUGS (4)
  1. CORDARONE [Suspect]
     Indication: ATRIAL FLUTTER
     Dosage: 200 MG 1X PER 1 DAY ORAL
     Route: 048
     Dates: start: 20041011, end: 20041029
  2. PREVISCAN (FLUINDIONE) [Concomitant]
  3. BREXINE (PIROXICAM) [Concomitant]
  4. HYZAAR [Concomitant]

REACTIONS (9)
  - BLOOD PRESSURE SYSTOLIC INCREASED [None]
  - BRADYCARDIA [None]
  - BUNDLE BRANCH BLOCK BILATERAL [None]
  - DIARRHOEA [None]
  - FALL [None]
  - LOSS OF CONSCIOUSNESS [None]
  - TORSADE DE POINTES [None]
  - VENTRICULAR EXTRASYSTOLES [None]
  - VENTRICULAR TACHYCARDIA [None]
